FAERS Safety Report 5247721-9 (Version None)
Quarter: 2007Q1

REPORT INFORMATION
  Report Type: 
  Country: None (occurrence: None)
  Receive Date: 20070227
  Receipt Date: 20070220
  Transmission Date: 20070707
  Serious: Yes (Death)
  Sender: FDA-Public Use
  Company Number: MX-ELI_LILLY_AND_COMPANY-MX200702004186

PATIENT
  Age: 46 Year
  Sex: Male

DRUGS (3)
  1. PEMETREXED [Suspect]
     Indication: PLEURAL MESOTHELIOMA MALIGNANT
     Dosage: 500 MG, UNK
  2. FOLIC ACID [Concomitant]
     Indication: PROPHYLAXIS
  3. VITAMIN B-12 [Concomitant]
     Indication: PROPHYLAXIS

REACTIONS (4)
  - BLOOD DISORDER [None]
  - DISEASE PROGRESSION [None]
  - RENAL DISORDER [None]
  - SKIN HYPERPIGMENTATION [None]
